FAERS Safety Report 19860517 (Version 1)
Quarter: 2021Q3

REPORT INFORMATION
  Report Type: Spontaneous
  Country: US (occurrence: US)
  Receive Date: 20210921
  Receipt Date: 20210921
  Transmission Date: 20211014
  Serious: No
  Sender: FDA-Public Use
  Company Number: US-CELLTRION INC.-2020US028864

PATIENT

DRUGS (1)
  1. INFLECTRA [Suspect]
     Active Substance: INFLIXIMAB-DYYB
     Indication: PRODUCT USED FOR UNKNOWN INDICATION
     Dosage: 500MG ON WK 0, WK2, WK6 THEN EVERY 14 WKS
     Route: 065
     Dates: start: 202008

REACTIONS (1)
  - Off label use [Unknown]
